FAERS Safety Report 5118552-5 (Version None)
Quarter: 2006Q3

REPORT INFORMATION
  Report Type: 
  Country: None (occurrence: None)
  Receive Date: 20060927
  Receipt Date: 20060914
  Transmission Date: 20061208
  Serious: Yes (Hospitalization)
  Sender: FDA-Public Use
  Company Number: 2005057846

PATIENT
  Age: 49 Year
  Sex: Female

DRUGS (3)
  1. SUTENT [Suspect]
     Indication: METASTATIC RENAL CELL CARCINOMA
     Dosage: 50 MG (50 MG, CYCLICAL), ORAL
     Route: 048
     Dates: start: 20050205, end: 20050401
  2. OMEPRAZOLE [Concomitant]
  3. DICLOFENAC SODIUM [Concomitant]

REACTIONS (8)
  - BACK PAIN [None]
  - FACIAL PALSY [None]
  - GENERALISED OEDEMA [None]
  - MENINGEAL DISORDER [None]
  - MONOPARESIS [None]
  - NERVOUS SYSTEM DISORDER [None]
  - RENAL FAILURE [None]
  - THROMBOTIC THROMBOCYTOPENIC PURPURA [None]
